FAERS Safety Report 8259057-2 (Version None)
Quarter: 2012Q2

REPORT INFORMATION
  Report Type: 
  Country: None (occurrence: None)
  Receive Date: 20120404
  Receipt Date: 20120327
  Transmission Date: 20120825
  Serious: Yes (Hospitalization)
  Sender: FDA-Public Use
  Company Number: IL-NOVOPROD-348170

PATIENT
  Age: 75 Year
  Sex: Male
  Weight: 84.8 kg

DRUGS (1)
  1. LIRAGLUTIDE FLEXPEN [Suspect]
     Indication: TYPE 2 DIABETES MELLITUS
     Dosage: 3.0 MG, UNK
     Route: 058
     Dates: start: 20110222

REACTIONS (1)
  - ANGINA UNSTABLE [None]
